FAERS Safety Report 7572862-0 (Version None)
Quarter: 2011Q2

REPORT INFORMATION
  Report Type: 
  Country: None (occurrence: None)
  Receive Date: 20110627
  Receipt Date: 20110620
  Transmission Date: 20111010
  Serious: Yes (Death, Hospitalization, Other)
  Sender: FDA-Public Use
  Company Number: FR-ELI_LILLY_AND_COMPANY-FR201106005485

PATIENT
  Age: 36 Year
  Sex: Female

DRUGS (7)
  1. OMEPRAZOLE [Concomitant]
  2. ERYFLUID [Concomitant]
     Indication: ACNE
  3. ZYPREXA [Suspect]
     Indication: HUNTINGTON'S DISEASE
     Dosage: 17.5 MG, QD
     Route: 048
     Dates: end: 20110419
  4. LUTERAN [Concomitant]
  5. PAROXETINE HCL [Concomitant]
     Dosage: 20 MG, QD
     Dates: end: 20110419
  6. DIHYDROERGOTAMINE MESYLATE [Concomitant]
  7. ABILIFY [Concomitant]
     Indication: HUNTINGTON'S DISEASE

REACTIONS (12)
  - NEUROLEPTIC MALIGNANT SYNDROME [None]
  - RHABDOMYOLYSIS [None]
  - PSEUDOMONAS TEST POSITIVE [None]
  - FALL [None]
  - OFF LABEL USE [None]
  - CYTOLYTIC HEPATITIS [None]
  - BLOOD CREATINE PHOSPHOKINASE INCREASED [None]
  - RENAL FAILURE [None]
  - ALTERED STATE OF CONSCIOUSNESS [None]
  - BLOOD SODIUM INCREASED [None]
  - HOSPITALISATION [None]
  - PYREXIA [None]
